FAERS Safety Report 6486161-1 (Version None)
Quarter: 2009Q4

REPORT INFORMATION
  Report Type: 
  Country: None (occurrence: None)
  Receive Date: 20091207
  Receipt Date: 20091123
  Transmission Date: 20100525
  Serious: Yes (Death)
  Sender: FDA-Public Use
  Company Number: 2009AC000461

PATIENT
  Age: 74 Year
  Sex: Male

DRUGS (1)
  1. DIGOXIN [Suspect]
     Dosage: PO
     Route: 048
     Dates: start: 20020101, end: 20070101

REACTIONS (8)
  - CARDIO-RESPIRATORY ARREST [None]
  - DYSPNOEA [None]
  - ECONOMIC PROBLEM [None]
  - MULTIPLE INJURIES [None]
  - RENAL FAILURE ACUTE [None]
  - RESPIRATORY FAILURE [None]
  - SURGERY [None]
  - UNEVALUABLE EVENT [None]
